FAERS Safety Report 17947247 (Version 1)
Quarter: 2020Q2

REPORT INFORMATION
  Report Type: Spontaneous
  Country: US (occurrence: US)
  Receive Date: 20200625
  Receipt Date: 20200625
  Transmission Date: 20200714
  Serious: Yes (Other)
  Sender: FDA-Public Use
  Company Number: US-MALLINCKRODT-T202001660

PATIENT
  Sex: Female
  Weight: 103 kg

DRUGS (2)
  1. H.P. ACTHAR [Suspect]
     Active Substance: CORTICOTROPIN
     Dosage: 80 UNITS, TWO TIMES A WEEK AS DIRECTED
     Route: 058
     Dates: start: 201912
  2. H.P. ACTHAR [Suspect]
     Active Substance: CORTICOTROPIN
     Indication: RHEUMATOID ARTHRITIS
     Dosage: 80 UNITS TWICE WEEKLY
     Route: 058
     Dates: start: 201911, end: 2019

REACTIONS (14)
  - Amnesia [Unknown]
  - Limb injury [Unknown]
  - Hyperhidrosis [Unknown]
  - Dyspnoea [Unknown]
  - Localised infection [Unknown]
  - Swelling face [Unknown]
  - Peripheral swelling [Unknown]
  - Rheumatoid arthritis [Unknown]
  - Erythema [Unknown]
  - Swelling [Unknown]
  - Pruritus [Unknown]
  - Skin discolouration [Unknown]
  - Anxiety [Unknown]
  - Depression [Unknown]
